FAERS Safety Report 9918679 (Version 1)
Quarter: 2014Q1

REPORT INFORMATION
  Report Type: Spontaneous
  Country: US (occurrence: US)
  Receive Date: 20140224
  Receipt Date: 20140224
  Transmission Date: 20141002
  Serious: Yes (Other)
  Sender: FDA-Public Use
  Company Number: US-TEVA-463847USA

PATIENT
  Age: 32 Year
  Sex: Female

DRUGS (3)
  1. WARFARIN [Suspect]
     Indication: PULMONARY EMBOLISM
     Dosage: 35 MG/WEEK (5 MG/DAY); THEN 37.5 MG/WEEK
     Route: 048
  2. WARFARIN [Suspect]
     Indication: PULMONARY EMBOLISM
     Dosage: 37.5 MG/WEEK (7.5MG ON MONDAYS AND 5MG ON ALL OTHER DAYS)
     Route: 048
  3. ONDANSETRON [Concomitant]
     Indication: CYCLIC VOMITING SYNDROME
     Route: 065

REACTIONS (3)
  - International normalised ratio increased [Recovered/Resolved]
  - Vomiting [Unknown]
  - Contusion [Unknown]
